FAERS Safety Report 23534356 (Version 2)
Quarter: 2024Q1

REPORT INFORMATION
  Report Type: Spontaneous
  Country: CO (occurrence: CO)
  Receive Date: 20240217
  Receipt Date: 20240229
  Transmission Date: 20240410
  Serious: Yes (Other)
  Sender: FDA-Public Use
  Company Number: CO-SANDOZ-SDZ2024CO013313

PATIENT
  Sex: Female

DRUGS (3)
  1. ANASTROZOLE [Suspect]
     Active Substance: ANASTROZOLE
     Indication: Product used for unknown indication
     Dosage: 1 TABLET DAILY
     Route: 065
  2. KISQALI [Suspect]
     Active Substance: RIBOCICLIB
     Indication: Product used for unknown indication
     Dosage: 200 MG, TID ( 3 PILLS DAILY)
     Route: 048
  3. HEPARIN [Concomitant]
     Active Substance: HEPARIN SODIUM
     Indication: Product used for unknown indication
     Dosage: UNK (1 APPLICATION DAILY)
     Route: 065

REACTIONS (3)
  - Metastasis [Recovered/Resolved]
  - Fatigue [Not Recovered/Not Resolved]
  - Hypertension [Recovering/Resolving]
